FAERS Safety Report 6341602-5 (Version None)
Quarter: 2009Q3

REPORT INFORMATION
  Report Type: 
  Country: None (occurrence: None)
  Receive Date: 20090902
  Receipt Date: 20090902
  Transmission Date: 20100115
  Serious: Yes (Hospitalization, Other)
  Sender: FDA-Public Use
  Company Number: None

PATIENT
  Age: 57 Year
  Sex: Female

DRUGS (3)
  1. CIPROFLAXACIN [Suspect]
     Dosage: ONCE, ORAL - A SINGLE DOSE -
     Route: 048
  2. PERINDOPRIL [Concomitant]
  3. INDAPAMIDE [Concomitant]

REACTIONS (3)
  - BLISTER [None]
  - RASH GENERALISED [None]
  - SKIN DISCOLOURATION [None]
